FAERS Safety Report 17056431 (Version 1)
Quarter: 2019Q4

REPORT INFORMATION
  Report Type: Spontaneous
  Country: BR (occurrence: BR)
  Receive Date: 20191121
  Receipt Date: 20191121
  Transmission Date: 20200122
  Serious: Yes (Hospitalization)
  Sender: FDA-Public Use
  Company Number: BR-AMGEN-BRASP2015100894

PATIENT
  Age: 58 Year
  Sex: Female
  Weight: 101 kg

DRUGS (6)
  1. SOTALOL. [Concomitant]
     Active Substance: SOTALOL
     Indication: ARRHYTHMIA
     Dosage: 160 MILLIGRAM, QD
  2. ENBREL [Suspect]
     Active Substance: ETANERCEPT
     Indication: PSORIASIS
     Dosage: UNK
     Route: 065
  3. ENBREL [Suspect]
     Active Substance: ETANERCEPT
     Indication: PSORIATIC ARTHROPATHY
     Dosage: 50 MILLIGRAM, QWK
     Route: 058
     Dates: start: 20150918
  4. ENBREL [Suspect]
     Active Substance: ETANERCEPT
     Indication: RHEUMATIC DISORDER
     Dosage: 50 MILLIGRAM, QWK
     Route: 065
     Dates: end: 201604
  5. SOTALOL. [Concomitant]
     Active Substance: SOTALOL
     Indication: CARDIAC DISORDER
  6. DORFLEX [Concomitant]
     Active Substance: CAFFEINE\DIPYRONE\ORPHENADRINE
     Dosage: UNK

REACTIONS (16)
  - Tachycardia [Recovered/Resolved]
  - Injection site erythema [Not Recovered/Not Resolved]
  - Skin hypertrophy [Not Recovered/Not Resolved]
  - Hypovitaminosis [Unknown]
  - Cardiac disorder [Recovered/Resolved]
  - Hypersensitivity [Unknown]
  - Alopecia [Recovered/Resolved]
  - Spinal pain [Recovered/Resolved]
  - Rhinitis [Recovered/Resolved]
  - Sciatica [Recovered/Resolved]
  - Skin plaque [Recovered/Resolved]
  - Hypertension [Recovered/Resolved]
  - Haematoma [Recovered/Resolved]
  - Sneezing [Recovered/Resolved]
  - Spinal disorder [Unknown]
  - Injection site discolouration [Not Recovered/Not Resolved]

NARRATIVE: CASE EVENT DATE: 2015
